FAERS Safety Report 11767575 (Version 4)
Quarter: 2016Q1

REPORT INFORMATION
  Report Type: Report from Study
  Country: US (occurrence: US)
  Receive Date: 20151123
  Receipt Date: 20160104
  Transmission Date: 20160525
  Serious: Yes (Hospitalization, Other)
  Sender: FDA-Public Use
  Company Number: US-ALEXION PHARMACEUTICALS INC-A201504556

PATIENT
  Sex: Male

DRUGS (3)
  1. CYCLOSPORINE. [Concomitant]
     Active Substance: CYCLOSPORINE
     Indication: PRODUCT USED FOR UNKNOWN INDICATION
     Dosage: UNK
     Route: 065
  2. SOLIRIS [Suspect]
     Active Substance: ECULIZUMAB
     Dosage: 900 MG, UNK
     Route: 042
  3. SOLIRIS [Suspect]
     Active Substance: ECULIZUMAB
     Indication: PAROXYSMAL NOCTURNAL HAEMOGLOBINURIA
     Dosage: 600 MG, UNK
     Route: 042

REACTIONS (9)
  - Skin exfoliation [Unknown]
  - Hypersensitivity [Recovering/Resolving]
  - Loss of consciousness [Unknown]
  - Dry skin [Recovering/Resolving]
  - Dyspnoea exertional [Not Recovered/Not Resolved]
  - Swelling [Unknown]
  - Pyrexia [Unknown]
  - Dermatitis allergic [Unknown]
  - Skin burning sensation [Unknown]
